FAERS Safety Report 23461370 (Version 1)
Quarter: 2024Q1

REPORT INFORMATION
  Report Type: Spontaneous
  Country: US (occurrence: None)
  Receive Date: 20240130
  Receipt Date: 20240130
  Transmission Date: 20240410
  Serious: Yes (Life-Threatening)
  Sender: FDA-Public Use
  Company Number: None

PATIENT
  Age: 62 Year
  Sex: Female

DRUGS (1)
  1. OTEZLA [Suspect]
     Active Substance: APREMILAST
     Indication: Lordosis
     Dosage: FREQUENCY : TWICE A DAY;?

REACTIONS (5)
  - Pulmonary mass [None]
  - Therapy interrupted [None]
  - Onychoclasis [None]
  - Dry skin [None]
  - Fall [None]
